FAERS Safety Report 24176164 (Version 2)
Quarter: 2024Q3

REPORT INFORMATION
  Report Type: Spontaneous
  Country: CA (occurrence: CA)
  Receive Date: 20240806
  Receipt Date: 20240807
  Transmission Date: 20241017
  Serious: Yes (Hospitalization, Other)
  Sender: AUROBINDO
  Company Number: CA-AUROBINDO-AUR-APL-2024-038658

PATIENT
  Age: 57 Year
  Sex: Female

DRUGS (9)
  1. AMOXICILLIN\CLAVULANIC ACID [Suspect]
     Active Substance: AMOXICILLIN\CLAVULANIC ACID
     Indication: Infection
     Dosage: UNK, TWO TIMES A DAY
     Route: 065
  2. AMOXICILLIN\CLAVULANIC ACID [Suspect]
     Active Substance: AMOXICILLIN\CLAVULANIC ACID
     Indication: Clostridium difficile infection
  3. VANCOMYCIN HYDROCHLORIDE [Suspect]
     Active Substance: VANCOMYCIN HYDROCHLORIDE
     Indication: Infection
     Dosage: 250 MILLIGRAM, TWO TIMES A DAY
     Route: 065
  4. VANCOMYCIN HYDROCHLORIDE [Suspect]
     Active Substance: VANCOMYCIN HYDROCHLORIDE
     Indication: Clostridium difficile infection
     Dosage: 250 MILLIGRAM, TWO TIMES A WEEK
     Route: 065
  5. REMICADE [Suspect]
     Active Substance: INFLIXIMAB
     Indication: Colitis ulcerative
     Dosage: 10 MILLIGRAM/KILOGRAM, 1 EVERY 4 WEEKS
     Route: 042
  6. PREDNISONE ACETATE [Suspect]
     Active Substance: PREDNISONE ACETATE
     Indication: Infection
     Dosage: 5 MILLIGRAM, ONCE A DAY
     Route: 065
  7. PREDNISONE ACETATE [Suspect]
     Active Substance: PREDNISONE ACETATE
     Indication: Clostridium difficile infection
  8. DUPILUMAB [Concomitant]
     Active Substance: DUPILUMAB
     Indication: Product used for unknown indication
     Dosage: 300 MILLIGRAM, 1 EVERY 2 WEEK
     Route: 065
  9. OXAZEPAM [Concomitant]
     Active Substance: OXAZEPAM
     Indication: Product used for unknown indication
     Dosage: 150 MILLIGRAM
     Route: 065

REACTIONS (8)
  - Abdominal pain [Recovering/Resolving]
  - Clostridium difficile infection [Recovering/Resolving]
  - Diarrhoea infectious [Recovering/Resolving]
  - Eczema [Recovering/Resolving]
  - Infection [Recovering/Resolving]
  - Sepsis [Recovering/Resolving]
  - Urinary tract infection [Recovering/Resolving]
  - Inappropriate schedule of product administration [Recovering/Resolving]
